FAERS Safety Report 15164900 (Version 1)
Quarter: 2018Q3

REPORT INFORMATION
  Report Type: Spontaneous
  Country: US (occurrence: US)
  Receive Date: 20180719
  Receipt Date: 20180719
  Transmission Date: 20181010
  Serious: No
  Sender: FDA-Public Use
  Company Number: US-BAYER-2018-131414

PATIENT
  Age: 91 Year
  Sex: Female
  Weight: 82 kg

DRUGS (2)
  1. MIRALAX [Suspect]
     Active Substance: POLYETHYLENE GLYCOL 3350
     Route: 048
     Dates: start: 201804, end: 201806
  2. SYNTHROID [Concomitant]
     Active Substance: LEVOTHYROXINE SODIUM

REACTIONS (5)
  - Product use issue [Unknown]
  - Diarrhoea [Unknown]
  - Product use complaint [None]
  - Gastrointestinal motility disorder [Unknown]
  - Incorrect dose administered [None]

NARRATIVE: CASE EVENT DATE: 201804
